FAERS Safety Report 23352679 (Version 1)
Quarter: 2023Q4

REPORT INFORMATION
  Report Type: Spontaneous
  Country: JP (occurrence: JP)
  Receive Date: 20231230
  Receipt Date: 20231230
  Transmission Date: 20240110
  Serious: Yes (Death, Other)
  Sender: FDA-Public Use
  Company Number: JP-UCBSA-2023058643

PATIENT
  Age: 65 Year
  Sex: Male

DRUGS (1)
  1. NEUPRO [Suspect]
     Active Substance: ROTIGOTINE
     Indication: Parkinson^s disease
     Dosage: UNK
     Route: 062
     Dates: end: 20231211

REACTIONS (5)
  - Septic shock [Fatal]
  - Hallucination [Unknown]
  - Myocarditis [Unknown]
  - Stress cardiomyopathy [Unknown]
  - Sepsis [Unknown]

NARRATIVE: CASE EVENT DATE: 20231201
